FAERS Safety Report 25990947 (Version 1)
Quarter: 2025Q4

REPORT INFORMATION
  Report Type: Spontaneous
  Country: BR (occurrence: BR)
  Receive Date: 20251103
  Receipt Date: 20251103
  Transmission Date: 20260119
  Serious: Yes (Other)
  Sender: BAYER HEALTHCARE PHARMACEUTICALS INC.
  Company Number: BR-BAYER-2025A143937

PATIENT
  Age: 42 Year
  Sex: Female

DRUGS (1)
  1. ULTRAVIST [Suspect]
     Active Substance: IOPROMIDE
     Indication: Scan with contrast
     Dosage: 100 ML, ONCE
     Route: 042
     Dates: start: 20250915, end: 20250915

REACTIONS (3)
  - Nausea [Recovered/Resolved]
  - Respiratory disorder [Recovered/Resolved]
  - Seizure [Recovered/Resolved]

NARRATIVE: CASE EVENT DATE: 20250915
